FAERS Safety Report 21650892 (Version 1)
Quarter: 2022Q4

REPORT INFORMATION
  Report Type: Spontaneous
  Country: GB (occurrence: GB)
  Receive Date: 20221128
  Receipt Date: 20221128
  Transmission Date: 20230112
  Serious: Yes (Other)
  Sender: FDA-Public Use
  Company Number: GB-PFM-2022-08392

PATIENT
  Age: 64 Year
  Sex: Female

DRUGS (4)
  1. BRAFTOVI [Suspect]
     Active Substance: ENCORAFENIB
     Indication: Metastatic malignant melanoma
     Dosage: NORMAL DOSE
     Route: 065
     Dates: start: 20220915
  2. BRAFTOVI [Suspect]
     Active Substance: ENCORAFENIB
     Dosage: RESUMED ON FULL DOSE
     Route: 065
  3. MEKTOVI [Suspect]
     Active Substance: BINIMETINIB
     Indication: Metastatic malignant melanoma
     Dosage: NORMAL DOSE
     Route: 065
     Dates: start: 20220915
  4. MEKTOVI [Suspect]
     Active Substance: BINIMETINIB
     Dosage: RESUMED ON FULL DOSE
     Route: 065

REACTIONS (1)
  - Retinopathy [Unknown]
